FAERS Safety Report 9148053 (Version 1)
Quarter: 2013Q1

REPORT INFORMATION
  Report Type: Spontaneous
  Country: DE (occurrence: DE)
  Receive Date: 20130308
  Receipt Date: 20130308
  Transmission Date: 20140127
  Serious: Yes (Death, Hospitalization)
  Sender: FDA-Public Use
  Company Number: DE-009507513-1303DEU001323

PATIENT
  Age: 31 Year
  Sex: Female

DRUGS (1)
  1. NUVARING [Suspect]
     Indication: CONTRACEPTION
     Route: 067

REACTIONS (2)
  - Pulmonary embolism [Fatal]
  - Tonsillectomy [Unknown]
